FAERS Safety Report 4397299-7 (Version None)
Quarter: 2004Q2

REPORT INFORMATION
  Report Type: 
  Country: None (occurrence: None)
  Receive Date: 20040621
  Receipt Date: 20040205
  Transmission Date: 20050107
  Serious: Yes (Death)
  Sender: FDA-Public Use
  Company Number: USA-2004-0012855

PATIENT
  Age: 43 Year
  Sex: Female
  Weight: 81.6 kg

DRUGS (3)
  1. OXYCONTIN [Suspect]
     Indication: PAIN
     Dosage: 40 MG, Q12H
  2. FLEXERIL [Suspect]
     Indication: MUSCLE SPASMS
     Dosage: 10 MG, SEE TEXT, ORAL
     Route: 048
  3. ALCOHOL (ETHANOL) [Suspect]

REACTIONS (2)
  - ACCIDENTAL OVERDOSE [None]
  - MULTIPLE DRUG OVERDOSE [None]
